FAERS Safety Report 11887407 (Version 2)
Quarter: 2016Q1

REPORT INFORMATION
  Report Type: Spontaneous
  Country: CA (occurrence: CA)
  Receive Date: 20160105
  Receipt Date: 20160219
  Transmission Date: 20160526
  Serious: Yes (Hospitalization)
  Sender: FDA-Public Use
  Company Number: CA-ROCHE-1687354

PATIENT
  Age: 43 Year
  Sex: Female

DRUGS (12)
  1. XOLAIR [Suspect]
     Active Substance: OMALIZUMAB
     Indication: ASTHMA
     Route: 058
     Dates: start: 20150205
  2. ALVESCO [Concomitant]
     Active Substance: CICLESONIDE
  3. PREDNISONE. [Concomitant]
     Active Substance: PREDNISONE
     Route: 065
  4. XOLAIR [Suspect]
     Active Substance: OMALIZUMAB
     Route: 058
     Dates: start: 20150309
  5. XOLAIR [Suspect]
     Active Substance: OMALIZUMAB
     Route: 058
     Dates: start: 20150408
  6. XOLAIR [Suspect]
     Active Substance: OMALIZUMAB
     Route: 058
     Dates: start: 20150601
  7. XOLAIR [Suspect]
     Active Substance: OMALIZUMAB
     Route: 058
     Dates: start: 20151228
  8. XOLAIR [Suspect]
     Active Substance: OMALIZUMAB
     Route: 058
     Dates: start: 20160209
  9. ADVAIR HFA [Concomitant]
     Active Substance: FLUTICASONE PROPIONATE\SALMETEROL XINAFOATE
     Route: 065
  10. VENTOLIN [Concomitant]
     Active Substance: ALBUTEROL SULFATE
     Route: 065
  11. FLU SHOT [Concomitant]
     Active Substance: INFLUENZA VIRUS VACCINE
     Route: 065
     Dates: start: 20151022
  12. XOLAIR [Suspect]
     Active Substance: OMALIZUMAB
     Route: 058
     Dates: start: 20150504

REACTIONS (16)
  - Hypoaesthesia oral [Recovered/Resolved]
  - Musculoskeletal pain [Unknown]
  - Oropharyngeal pain [Recovered/Resolved]
  - Body temperature decreased [Unknown]
  - Myalgia [Unknown]
  - Arthralgia [Unknown]
  - Nasopharyngitis [Unknown]
  - Pain in extremity [Unknown]
  - Respiratory depression [Unknown]
  - Plantar fasciitis [Unknown]
  - Incision site erythema [Unknown]
  - Obstructive airways disorder [Unknown]
  - Concomitant disease aggravated [Unknown]
  - Sensation of foreign body [Recovered/Resolved]
  - Gait disturbance [Unknown]
  - Adverse drug reaction [Recovered/Resolved]

NARRATIVE: CASE EVENT DATE: 20150205
